FAERS Safety Report 25239362 (Version 1)
Quarter: 2025Q2

REPORT INFORMATION
  Report Type: Spontaneous
  Country: US (occurrence: None)
  Receive Date: 20250424
  Receipt Date: 20250424
  Transmission Date: 20250717
  Serious: No
  Sender: FDA-CTU
  Company Number: None

PATIENT
  Age: 57 Year
  Sex: Male

DRUGS (1)
  1. BUPRENORPHINE [Suspect]
     Active Substance: BUPRENORPHINE
     Indication: Pain
     Dates: start: 20231031, end: 20240415

REACTIONS (6)
  - Dental caries [None]
  - Radiculopathy [None]
  - Impaired quality of life [None]
  - Tooth discolouration [None]
  - Tooth loss [None]
  - Tooth injury [None]

NARRATIVE: CASE EVENT DATE: 20240417
